FAERS Safety Report 4910279-5 (Version None)
Quarter: 2006Q1

REPORT INFORMATION
  Report Type: 
  Country: None (occurrence: None)
  Receive Date: 20060209
  Receipt Date: 20060127
  Transmission Date: 20060701
  Serious: Yes (Death)
  Sender: FDA-Public Use
  Company Number: 2005135362

PATIENT
  Age: 36 Year
  Sex: Female
  Weight: 73.9363 kg

DRUGS (8)
  1. NEURONTIN [Suspect]
     Indication: COMPLEX REGIONAL PAIN SYNDROME
     Dosage: ORAL
     Route: 048
     Dates: start: 20010601
  2. MORPHINE [Suspect]
     Indication: ILL-DEFINED DISORDER
  3. ACETAMINOPHEN [Suspect]
     Indication: ILL-DEFINED DISORDER
  4. HYDROCODONE BITARTRATE [Suspect]
     Indication: ILL-DEFINED DISORDER
  5. MIRTAZAPINE [Suspect]
     Indication: ILL-DEFINED DISORDER
  6. BARBITURATES (BARBITURATES) [Suspect]
     Indication: ILL-DEFINED DISORDER
  7. BENZODIAZEPINE DERIVATIVES (BENZODIAZEPINE DERIVATIVES) [Concomitant]
  8. OPIUM ALKALOIDS AND DERIVATIVES (OPIUM ALKALOIDS AND DERIVATIVES) [Concomitant]

REACTIONS (4)
  - CARDIAC ARREST [None]
  - COMPLETED SUICIDE [None]
  - DRUG INEFFECTIVE [None]
  - DRUG TOXICITY [None]
